FAERS Safety Report 9805623 (Version 3)
Quarter: 2014Q2

REPORT INFORMATION
  Report Type: Report from Study
  Country: US (occurrence: US)
  Receive Date: 20140109
  Receipt Date: 20140507
  Transmission Date: 20141212
  Serious: Yes (Hospitalization)
  Sender: FDA-Public Use
  Company Number: US-SA-2014SA000517

PATIENT
  Age: 24 Year
  Sex: Female
  Weight: 229 kg

DRUGS (11)
  1. AUBAGIO [Suspect]
     Indication: MULTIPLE SCLEROSIS
     Route: 065
     Dates: start: 20130105
  2. ALL OTHER THERAPEUTIC PRODUCTS [Suspect]
     Indication: RHEUMATOID ARTHRITIS
     Route: 065
  3. ALL OTHER THERAPEUTIC PRODUCTS [Suspect]
     Indication: RHEUMATOID ARTHRITIS
     Route: 065
  4. VENTOLINE [Concomitant]
     Dosage: 2 PUFF
  5. TIZANIDINE HYDROCHLORIDE [Concomitant]
     Dosage: 1 PILL TWICE A DAY OR WHEN NEEDED (FOR MS RELATED PAIN)
  6. DESOGESTREL/ETHINYLESTRADIOL [Concomitant]
     Indication: CONTRACEPTION
     Dosage: PILL
  7. AMITRIPTYLINE [Concomitant]
     Dosage: TWO TABLETS (PILLS) AT BEDTIME. (FOR ARM/LEG SPASMS AND TEMPER)
  8. ZYRTEC [Concomitant]
     Indication: HYPERSENSITIVITY
     Dosage: 1 PILL
  9. VITAMINS [Concomitant]
     Dosage: 1 PILL DAILY
  10. MOTRIN [Concomitant]
     Indication: PAIN
     Dosage: 2 PILL
  11. VITAMINS [Concomitant]
     Indication: METABOLIC DISORDER
     Dosage: 1 PILL

REACTIONS (8)
  - Asthma [Unknown]
  - Rheumatoid arthritis [Unknown]
  - Gait disturbance [Unknown]
  - Muscle disorder [Recovering/Resolving]
  - Movement disorder [Recovering/Resolving]
  - Memory impairment [Recovering/Resolving]
  - Nausea [Recovered/Resolved]
  - Headache [Recovering/Resolving]
